FAERS Safety Report 13049972 (Version 1)
Quarter: 2016Q4

REPORT INFORMATION
  Report Type: Report from Study
  Country: None (occurrence: CA)
  Receive Date: 20161221
  Receipt Date: 20161221
  Transmission Date: 20170207
  Serious: Yes (Other)
  Sender: FDA-Public Use
  Company Number: CA-ABBVIE-16P-028-1815021-00

PATIENT
  Age: 72 Year
  Sex: Male
  Weight: 71.5 kg

DRUGS (7)
  1. FOSAMAX [Concomitant]
     Active Substance: ALENDRONATE SODIUM
     Indication: PROPHYLAXIS
     Route: 048
     Dates: start: 20150608
  2. NIFEDIPINE EX [Concomitant]
     Indication: HYPERTENSION
     Route: 048
     Dates: start: 2005
  3. RAPAFLO [Concomitant]
     Active Substance: SILODOSIN
     Indication: LOWER URINARY TRACT SYMPTOMS
     Route: 048
     Dates: start: 20150219
  4. CALCIUM D [Concomitant]
     Active Substance: CALCIUM\VITAMIN D
     Indication: PROPHYLAXIS
     Dosage: 500MG/400IU
     Route: 048
     Dates: start: 20150604
  5. ROSUVASTATIN. [Concomitant]
     Active Substance: ROSUVASTATIN
     Indication: HYPERCHOLESTEROLAEMIA
     Route: 048
     Dates: start: 2007
  6. LUPRON DEPOT [Suspect]
     Active Substance: LEUPROLIDE ACETATE
     Indication: PRODUCT USED FOR UNKNOWN INDICATION
     Route: 030
     Dates: start: 20150313
  7. TAMOX [Concomitant]
     Indication: GYNAECOMASTIA
     Route: 048
     Dates: start: 20121106, end: 20151029

REACTIONS (11)
  - Asthenia [Unknown]
  - Aortic arteriosclerosis [Not Recovered/Not Resolved]
  - Inguinal hernia [Not Recovered/Not Resolved]
  - Hormone-refractory prostate cancer [Not Recovered/Not Resolved]
  - Asthenia [Unknown]
  - Constipation [Unknown]
  - Hot flush [Unknown]
  - Urinary tract infection [Recovered/Resolved]
  - Muscle atrophy [Unknown]
  - Herpes zoster [Recovered/Resolved with Sequelae]
  - Weight decreased [Unknown]

NARRATIVE: CASE EVENT DATE: 20150327
